FAERS Safety Report 7265913-4 (Version None)
Quarter: 2011Q1

REPORT INFORMATION
  Report Type: 
  Country: None (occurrence: None)
  Receive Date: 20110131
  Receipt Date: 20110124
  Transmission Date: 20110831
  Serious: Yes (Death, Life-Threatening)
  Sender: FDA-Public Use
  Company Number: B0696545A

PATIENT
  Sex: Male
  Weight: 40 kg

DRUGS (38)
  1. GRAN [Concomitant]
     Dosage: 450MG PER DAY
     Dates: start: 20071020, end: 20071201
  2. URSO 250 [Concomitant]
     Dosage: 600MG PER DAY
     Route: 048
     Dates: start: 20071011, end: 20071120
  3. MORPHINE HYDROCHLORIDE [Concomitant]
     Dosage: 5MG PER DAY
     Route: 048
     Dates: start: 20071102, end: 20071115
  4. NEO-MINOPHAGEN-C [Concomitant]
     Dosage: 4IUAX PER DAY
     Route: 042
     Dates: start: 20071012, end: 20071201
  5. MEROPENEM [Concomitant]
     Dosage: 4IUAX PER DAY
     Route: 042
     Dates: start: 20071018, end: 20071026
  6. HACHIAZULE [Concomitant]
     Dosage: 6G PER DAY
     Route: 002
     Dates: start: 20071021, end: 20071128
  7. FUNGUARD [Concomitant]
     Dosage: 3IUAX PER DAY
     Route: 042
     Dates: start: 20071019, end: 20071031
  8. CRAVIT [Concomitant]
     Dosage: 300MG PER DAY
     Route: 048
     Dates: start: 20071011, end: 20071015
  9. BIOFERMIN R [Concomitant]
     Dosage: 3IUAX PER DAY
     Route: 048
     Dates: start: 20071011, end: 20071120
  10. DUROTEP [Concomitant]
     Route: 062
     Dates: start: 20071018, end: 20071123
  11. SEROQUEL [Concomitant]
     Dosage: .5MG PER DAY
     Route: 048
     Dates: start: 20071106, end: 20071122
  12. OMEPRAL [Concomitant]
     Dosage: 20MG PER DAY
     Route: 048
     Dates: start: 20071005, end: 20071120
  13. DIFLUCAN [Concomitant]
     Dosage: 200MG PER DAY
     Route: 048
     Dates: start: 20071011, end: 20071115
  14. SERENACE [Concomitant]
     Dosage: 1.5MG PER DAY
     Route: 048
     Dates: start: 20071012, end: 20071108
  15. KLARICID [Concomitant]
     Dosage: 200MG PER DAY
     Route: 048
     Dates: start: 20071012, end: 20071025
  16. ORGARAN [Concomitant]
     Dosage: 2IUAX PER DAY
     Route: 042
     Dates: start: 20071012, end: 20071118
  17. MEYLON [Concomitant]
     Dosage: 80ML PER DAY
     Route: 042
     Dates: start: 20071017, end: 20071017
  18. FOY [Concomitant]
     Dosage: 6IUAX PER DAY
     Route: 042
     Dates: start: 20071022, end: 20071031
  19. TOBRACIN [Concomitant]
     Dosage: 2IUAX PER DAY
     Dates: start: 20071025, end: 20071026
  20. AMBISOME [Concomitant]
     Dosage: .6IUAX PER DAY
     Route: 042
     Dates: start: 20071109, end: 20071201
  21. FUNGIZONE [Concomitant]
     Dosage: 60ML PER DAY
     Route: 002
     Dates: start: 20071005, end: 20071122
  22. DEPAS [Concomitant]
     Dosage: .5MG PER DAY
     Route: 048
     Dates: start: 20071013, end: 20071101
  23. WYPAX [Concomitant]
     Dosage: .5MG PER DAY
     Route: 048
     Dates: start: 20071025, end: 20071105
  24. ATARAX [Concomitant]
     Dosage: 1ML PER DAY
     Dates: start: 20071018, end: 20071102
  25. FLUDARA [Suspect]
     Indication: CORD BLOOD TRANSPLANT THERAPY
     Dosage: 25MGM2 PER DAY
     Route: 042
     Dates: start: 20071012, end: 20071016
  26. ULCERLMIN [Concomitant]
     Dosage: 3G PER DAY
     Route: 048
     Dates: start: 20071022, end: 20071126
  27. FIRSTCIN [Concomitant]
     Dosage: 4IUAX PER DAY
     Route: 042
     Dates: start: 20071012, end: 20071114
  28. FOY [Concomitant]
     Dosage: 2IUAX PER DAY
     Route: 042
     Dates: start: 20071018, end: 20071107
  29. CYCLOSPORINE [Concomitant]
     Indication: IMMUNOSUPPRESSION
     Dosage: 130MG PER DAY
     Route: 065
     Dates: start: 20071018, end: 20071201
  30. ZOVIRAX [Concomitant]
     Dosage: 1000MG PER DAY
     Route: 048
     Dates: start: 20071011, end: 20071120
  31. KYTRIL [Concomitant]
     Dosage: 3ML PER DAY
     Dates: start: 20071012, end: 20071017
  32. ADONA (AC-17) [Concomitant]
     Dosage: 20ML PER DAY
     Dates: start: 20071017, end: 20071020
  33. MINOMYCIN [Concomitant]
     Dosage: 2IUAX PER DAY
     Route: 042
     Dates: start: 20071026, end: 20071112
  34. XYLOCAINE [Concomitant]
     Dosage: 50ML PER DAY
     Dates: start: 20071104, end: 20071106
  35. ALKERAN [Suspect]
     Indication: CORD BLOOD TRANSPLANT THERAPY
     Dosage: 80MGM2 PER DAY
     Route: 042
     Dates: start: 20071017, end: 20071017
  36. MEXITIL [Concomitant]
     Dosage: 150MG PER DAY
     Route: 048
     Dates: start: 20071012, end: 20071104
  37. MAGLAX [Concomitant]
     Dosage: 660MG PER DAY
     Route: 048
     Dates: start: 20071012, end: 20071125
  38. SULPERAZON [Concomitant]
     Dosage: 4IUAX PER DAY
     Route: 042
     Dates: start: 20071026, end: 20071101

REACTIONS (4)
  - PSEUDOMONAS INFECTION [None]
  - C-REACTIVE PROTEIN INCREASED [None]
  - FUNGAEMIA [None]
  - SEPSIS [None]
